FAERS Safety Report 11207546 (Version 1)
Quarter: 2015Q2

REPORT INFORMATION
  Report Type: Report from Study
  Country: US (occurrence: US)
  Receive Date: 20150622
  Receipt Date: 20150622
  Transmission Date: 20150821
  Serious: No
  Sender: FDA-Public Use
  Company Number: US-ABBVIE-15P-163-1393538-00

PATIENT
  Age: 37 Year
  Sex: Male

DRUGS (2)
  1. RIBAVIRIN. [Concomitant]
     Active Substance: RIBAVIRIN
     Indication: PRODUCT USED FOR UNKNOWN INDICATION
     Route: 048
  2. VIEKIRA PAK [Suspect]
     Active Substance: DASABUVIR\OMBITASVIR\PARITAPREVIR\RITONAVIR
     Indication: HEPATITIS C
     Dosage: 2 PINK TABLETS DAILY (AM) AND 1 BEIGE TABLET TWICE DAILY (AM/PM)
     Route: 048
     Dates: start: 201503

REACTIONS (14)
  - Pruritus [Unknown]
  - Nasal discomfort [Unknown]
  - Dyspepsia [Unknown]
  - Sinus headache [Unknown]
  - Nausea [Unknown]
  - Arthralgia [Unknown]
  - White blood cell count decreased [Unknown]
  - Rash [Unknown]
  - Nasal dryness [Unknown]
  - Rhinorrhoea [Unknown]
  - Paranasal sinus discomfort [Unknown]
  - Feeling abnormal [Unknown]
  - Epistaxis [Unknown]
  - Rhinorrhoea [Unknown]

NARRATIVE: CASE EVENT DATE: 201505
